FAERS Safety Report 19399536 (Version 2)
Quarter: 2022Q1

REPORT INFORMATION
  Report Type: Spontaneous
  Country: US (occurrence: US)
  Receive Date: 20210610
  Receipt Date: 20220220
  Transmission Date: 20220423
  Serious: Yes (Other)
  Sender: FDA-Public Use
  Company Number: US-GILEAD-2021-0534822

PATIENT
  Sex: Female

DRUGS (39)
  1. VIREAD [Suspect]
     Active Substance: TENOFOVIR DISOPROXIL FUMARATE
     Indication: HIV infection
     Dosage: UNK
     Route: 048
     Dates: start: 2002, end: 200801
  2. ALLOPURINOL [Concomitant]
     Active Substance: ALLOPURINOL
  3. AMLODIPINE BESYLATE [Concomitant]
     Active Substance: AMLODIPINE BESYLATE
  4. ALBUTEROL [Concomitant]
     Active Substance: ALBUTEROL
  5. BRIMONIDINE TARTRATE [Concomitant]
     Active Substance: BRIMONIDINE TARTRATE
  6. CARVEDILOL [Concomitant]
     Active Substance: CARVEDILOL
  7. CELEBREX [Concomitant]
     Active Substance: CELECOXIB
  8. CELECOXIB [Concomitant]
     Active Substance: CELECOXIB
  9. CYCLOBENZAPRINE [Concomitant]
     Active Substance: CYCLOBENZAPRINE
  10. DAPSONE [Concomitant]
     Active Substance: DAPSONE
  11. ENDOCET [Concomitant]
     Active Substance: ACETAMINOPHEN\OXYCODONE HYDROCHLORIDE
  12. ERGOCALCIFEROL [Concomitant]
     Active Substance: ERGOCALCIFEROL
  13. ESTRADIOL [Concomitant]
     Active Substance: ESTRADIOL
  14. FAMVIR [Concomitant]
     Active Substance: FAMCICLOVIR
  15. FERROUS SULFATE [Concomitant]
     Active Substance: FERROUS SULFATE
  16. FLUCONAZOLE [Concomitant]
     Active Substance: FLUCONAZOLE
  17. HYDROCORTISONE [Concomitant]
     Active Substance: HYDROCORTISONE
  18. HYDROXYZINE [Concomitant]
     Active Substance: HYDROXYZINE HYDROCHLORIDE
  19. ISENTRESS [Concomitant]
     Active Substance: RALTEGRAVIR POTASSIUM
  20. KALETRA [Concomitant]
     Active Substance: LOPINAVIR\RITONAVIR
  21. KETOCONAZOLE [Concomitant]
     Active Substance: KETOCONAZOLE
  22. LORATADINE [Concomitant]
     Active Substance: LORATADINE
  23. ASPIRIN [Concomitant]
     Active Substance: ASPIRIN
  24. NEXIUM I.V. [Concomitant]
     Active Substance: ESOMEPRAZOLE SODIUM
  25. NORVIR [Concomitant]
     Active Substance: RITONAVIR
  26. NYSTATIN [Concomitant]
     Active Substance: NYSTATIN
  27. PREZCOBIX [Concomitant]
     Active Substance: COBICISTAT\DARUNAVIR ETHANOLATE
  28. PREZISTA [Concomitant]
     Active Substance: DARUNAVIR ETHANOLATE
  29. PROCRIT [Concomitant]
     Active Substance: ERYTHROPOIETIN
  30. PROVENTIL HFA [SALBUTAMOL] [Concomitant]
  31. REYATAZ [Concomitant]
     Active Substance: ATAZANAVIR SULFATE
  32. THERA-M [Concomitant]
  33. TIVICAY [Concomitant]
     Active Substance: DOLUTEGRAVIR SODIUM
  34. TOPAMAX [Concomitant]
     Active Substance: TOPIRAMATE
  35. VALACYCLOVIR [Concomitant]
     Active Substance: VALACYCLOVIR HYDROCHLORIDE
  36. VENTOLIN HFA [Concomitant]
     Active Substance: ALBUTEROL SULFATE
  37. VIDEX [Concomitant]
     Active Substance: DIDANOSINE
  38. VITAMIN C [Concomitant]
     Active Substance: ASCORBIC ACID
  39. ERGOCALCIFEROL [Concomitant]
     Active Substance: ERGOCALCIFEROL

REACTIONS (10)
  - Chronic kidney disease [Unknown]
  - Renal failure [Not Recovered/Not Resolved]
  - Emotional distress [Not Recovered/Not Resolved]
  - Anhedonia [Not Recovered/Not Resolved]
  - Anxiety [Not Recovered/Not Resolved]
  - Pain [Not Recovered/Not Resolved]
  - Depression [Unknown]
  - Back pain [Unknown]
  - Sleep disorder due to general medical condition, insomnia type [Unknown]
  - Pollakiuria [Unknown]
